FAERS Safety Report 20841492 (Version 2)
Quarter: 2022Q3

REPORT INFORMATION
  Report Type: Report from Study
  Country: US (occurrence: US)
  Receive Date: 20220518
  Receipt Date: 20220715
  Transmission Date: 20221027
  Serious: Yes (Other)
  Sender: FDA-Public Use
  Company Number: US-BIOGEN-2022BI01123587

PATIENT
  Sex: Female

DRUGS (10)
  1. TECFIDERA [Suspect]
     Active Substance: DIMETHYL FUMARATE
     Indication: Multiple sclerosis
     Route: 050
     Dates: start: 20160409, end: 20171213
  2. TECFIDERA [Suspect]
     Active Substance: DIMETHYL FUMARATE
     Route: 050
     Dates: start: 20171213, end: 20210124
  3. ATORVASTATIN CALCIUM [Concomitant]
     Active Substance: ATORVASTATIN CALCIUM
     Indication: Product used for unknown indication
     Route: 050
     Dates: start: 20160402
  4. Butalbital - APAP - Caffeine [Concomitant]
     Indication: Product used for unknown indication
     Dosage: TAKE 1 OR 2 TABLETS EVERY 4 HOURS AS NEEDED FOR HEADACHE. DO NOT EXCEED 6 TABLETS IN 24 HOURS.?50...
     Route: 050
     Dates: start: 20160229
  5. CLONAZEPAM [Concomitant]
     Active Substance: CLONAZEPAM
     Indication: Product used for unknown indication
     Dosage: AS NEEDED
     Route: 050
     Dates: start: 20201019
  6. GABAPENTIN [Concomitant]
     Active Substance: GABAPENTIN
     Indication: Product used for unknown indication
     Dosage: TAKE 1 CAPSULE AT BEDTIME
     Route: 050
     Dates: start: 20170706
  7. LAMOTRIGINE [Concomitant]
     Active Substance: LAMOTRIGINE
     Indication: Product used for unknown indication
     Route: 050
     Dates: start: 20161027
  8. TIZANIDINE HYDROCHLORIDE [Concomitant]
     Active Substance: TIZANIDINE HYDROCHLORIDE
     Indication: Product used for unknown indication
     Dosage: 4 MG ORAL TABLET (ZANAFLEX)
     Route: 050
     Dates: start: 20170126
  9. FAMOTIDINE [Concomitant]
     Active Substance: FAMOTIDINE
     Indication: Gastrooesophageal reflux disease
     Dosage: TAKE 1 TABLET BY MOUTH AT BED TIME
     Route: 050
     Dates: start: 20190702
  10. SPIRONOLACTONE [Concomitant]
     Active Substance: SPIRONOLACTONE
     Indication: Hypertension
     Dosage: TAKE 1 TABLET DAILY
     Route: 050
     Dates: start: 20151229

REACTIONS (1)
  - Major depression [Unknown]
